FAERS Safety Report 9345981 (Version 1)
Quarter: 2013Q2

REPORT INFORMATION
  Report Type: Spontaneous
  Country: US (occurrence: US)
  Receive Date: 20130613
  Receipt Date: 20130613
  Transmission Date: 20140414
  Serious: Yes (Hospitalization, Disabling, Other)
  Sender: FDA-Public Use
  Company Number: US-ASTELLAS-2013US006146

PATIENT
  Sex: Female

DRUGS (2)
  1. PROGRAF [Suspect]
     Indication: LUNG TRANSPLANT
     Dosage: 1 MG, BID
     Route: 065
     Dates: end: 20121026
  2. PROGRAF [Suspect]
     Dosage: 3 MG AM /4 MG PM
     Route: 065

REACTIONS (8)
  - Off label use [Unknown]
  - Hospitalisation [Unknown]
  - Dyskinesia [Unknown]
  - Muscular weakness [Unknown]
  - Hypoaesthesia [Unknown]
  - Lung transplant rejection [Unknown]
  - Joint lock [Unknown]
  - Fall [Unknown]
